FAERS Safety Report 21044238 (Version 1)
Quarter: 2022Q3

REPORT INFORMATION
  Report Type: Spontaneous
  Country: US (occurrence: US)
  Receive Date: 20220705
  Receipt Date: 20220705
  Transmission Date: 20221027
  Serious: No
  Sender: FDA-Public Use
  Company Number: US-009507513-2206USA007929

PATIENT
  Age: 66 Year
  Sex: Female

DRUGS (1)
  1. KEYTRUDA [Suspect]
     Active Substance: PEMBROLIZUMAB
     Indication: Renal cancer
     Dosage: 200 MILLIGRAM, EVERY 21 DAYS (Q3W)

REACTIONS (3)
  - Product dose omission issue [Unknown]
  - Inability to afford medication [Unknown]
  - No adverse event [Unknown]

NARRATIVE: CASE EVENT DATE: 20220608
